FAERS Safety Report 12785302 (Version 2)
Quarter: 2016Q4

REPORT INFORMATION
  Report Type: Spontaneous
  Country: DE (occurrence: DE)
  Receive Date: 20160927
  Receipt Date: 20161019
  Transmission Date: 20170207
  Serious: Yes (Other)
  Sender: FDA-Public Use
  Company Number: DE-SA-2016SA172197

PATIENT
  Age: 49 Year
  Sex: Male

DRUGS (7)
  1. PANTOPRAZOLE [Concomitant]
     Active Substance: PANTOPRAZOLE SODIUM
  2. AUBAGIO [Suspect]
     Active Substance: TERIFLUNOMIDE
     Indication: MULTIPLE SCLEROSIS
     Route: 048
     Dates: start: 201403, end: 20160914
  3. AMLODIPINE [Concomitant]
     Active Substance: AMLODIPINE BESYLATE
  4. ENALAPRIL [Concomitant]
     Active Substance: ENALAPRIL
  5. ORTOTON [Concomitant]
  6. RAMILICH [Concomitant]
     Active Substance: RAMIPRIL
  7. CARBAMAZEPINE. [Concomitant]
     Active Substance: CARBAMAZEPINE
     Indication: NEURALGIA
     Route: 048
     Dates: start: 201311, end: 20160914

REACTIONS (2)
  - Lipase increased [Recovered/Resolved]
  - Pancreatitis [Not Recovered/Not Resolved]
